FAERS Safety Report 10230009 (Version 1)
Quarter: 2014Q2

REPORT INFORMATION
  Report Type: Spontaneous
  Country: US (occurrence: None)
  Receive Date: 20140610
  Receipt Date: 20140610
  Transmission Date: 20141212
  Serious: Yes (Life-Threatening, Hospitalization, Other)
  Sender: FDA-Public Use
  Company Number: None

PATIENT
  Age: 71 Year
  Sex: Male
  Weight: 145.15 kg

DRUGS (18)
  1. OMEPRAZOLE SANDOZ [Suspect]
     Indication: GASTROOESOPHAGEAL REFLUX DISEASE
     Dosage: BY MOUTH
     Dates: start: 20131223, end: 20131223
  2. PIOGLITAZONE [Concomitant]
  3. METFORMIN [Concomitant]
  4. SYNTHROID [Concomitant]
  5. OXYBUTYNIN [Concomitant]
  6. BAYER ASPIRIN [Concomitant]
  7. GEMFIBROZIL [Concomitant]
  8. BISOPROLOL FUMARATE [Concomitant]
  9. PRAVASTATIN [Concomitant]
  10. OMEPRAZOLE [Concomitant]
  11. FOSINOPRIL SODIUIM [Concomitant]
  12. AMLODIPINE BESYLATE [Concomitant]
  13. BYDUREN [Concomitant]
  14. B-12 [Concomitant]
  15. BAYER [Concomitant]
  16. CALCIUM [Concomitant]
  17. OCUVITE [Concomitant]
  18. MULTIVITAMIN [Concomitant]

REACTIONS (3)
  - Anaphylactic reaction [None]
  - Lip swelling [None]
  - Product quality issue [None]
